FAERS Safety Report 4640229-0 (Version None)
Quarter: 2005Q2

REPORT INFORMATION
  Report Type: 
  Country: None (occurrence: None)
  Receive Date: 20050419
  Receipt Date: 20050407
  Transmission Date: 20051028
  Serious: Yes (Other)
  Sender: FDA-Public Use
  Company Number: HQWYE884808APR05

PATIENT
  Sex: Female

DRUGS (1)
  1. EFFEXOR XR [Suspect]

REACTIONS (1)
  - SKIN CANCER [None]
